FAERS Safety Report 17014522 (Version 1)
Quarter: 2019Q4

REPORT INFORMATION
  Report Type: Report from Study
  Country: US (occurrence: US)
  Receive Date: 20191111
  Receipt Date: 20191111
  Transmission Date: 20200122
  Serious: Yes (Life-Threatening, Other)
  Sender: FDA-Public Use
  Company Number: US-AUROBINDO-AUR-APL-2019-070567

PATIENT
  Age: 59 Year
  Sex: Male

DRUGS (2)
  1. VORICONAZOLE. [Suspect]
     Active Substance: VORICONAZOLE
     Indication: MENINGITIS COCCIDIOIDES
     Dosage: UNK
     Route: 065
  2. FLUCONAZOLE. [Suspect]
     Active Substance: FLUCONAZOLE
     Indication: MENINGITIS COCCIDIOIDES
     Dosage: UNK
     Route: 065

REACTIONS (5)
  - Treatment failure [Recovered/Resolved]
  - Vomiting [Unknown]
  - Liver injury [Unknown]
  - Nausea [Unknown]
  - Toxicity to various agents [Unknown]
